FAERS Safety Report 14814292 (Version 1)
Quarter: 2018Q2

REPORT INFORMATION
  Report Type: Spontaneous
  Country: FR (occurrence: FR)
  Receive Date: 20180426
  Receipt Date: 20180426
  Transmission Date: 20180711
  Serious: Yes (Other)
  Sender: FDA-Public Use
  Company Number: FR-MERCK KGAA-2046603

PATIENT
  Age: 52 Year
  Sex: Female

DRUGS (2)
  1. NOVOTHYROX [Suspect]
     Active Substance: LEVOTHYROXINE SODIUM
     Indication: POST PROCEDURAL HYPOTHYROIDISM
  2. NOVOTHYROX [Suspect]
     Active Substance: LEVOTHYROXINE SODIUM

REACTIONS (30)
  - Disturbance in attention [None]
  - Myalgia [None]
  - Arthralgia [None]
  - Alopecia [None]
  - General physical health deterioration [None]
  - Weight increased [None]
  - Exercise tolerance decreased [None]
  - Blood triglycerides increased [None]
  - Headache [None]
  - Constipation [None]
  - Musculoskeletal stiffness [None]
  - Mental fatigue [None]
  - Red blood cell sedimentation rate decreased [None]
  - Hyperthyroidism [None]
  - Confusional state [None]
  - Depression [None]
  - Dry skin [None]
  - Panic attack [None]
  - Muscle spasms [None]
  - Somnolence [None]
  - Carpal tunnel syndrome [None]
  - Asthenia [None]
  - Amnesia [None]
  - Dizziness [None]
  - Hair texture abnormal [None]
  - Mood swings [None]
  - Decreased interest [None]
  - Mobility decreased [None]
  - Onychoclasis [None]
  - Blood thyroid stimulating hormone increased [None]

NARRATIVE: CASE EVENT DATE: 20170207
